FAERS Safety Report 7285564-5 (Version None)
Quarter: 2011Q1

REPORT INFORMATION
  Report Type: 
  Country: None (occurrence: None)
  Receive Date: 20110210
  Receipt Date: 20110207
  Transmission Date: 20110831
  Serious: Yes (Hospitalization, Other)
  Sender: FDA-Public Use
  Company Number: US-ROXANE LABORATORIES, INC.-2011-RO-00148RO

PATIENT
  Age: 30 Year
  Sex: Male

DRUGS (8)
  1. OXCARBAZEPINE [Suspect]
     Dosage: 1800 MG
  2. LITHIUM CARBONATE [Suspect]
     Dosage: 1800 MG
  3. LITHIUM CARBONATE [Suspect]
     Indication: SCHIZOAFFECTIVE DISORDER
     Dosage: 1200 MG
  4. OXCARBAZEPINE [Suspect]
     Indication: SCHIZOAFFECTIVE DISORDER
     Dosage: 1200 MG
  5. RISPERIDONE [Suspect]
     Indication: SCHIZOAFFECTIVE DISORDER
     Dosage: 6 MG
  6. CLOZAPINE [Suspect]
     Indication: SCHIZOAFFECTIVE DISORDER
     Dosage: 500 MG
  7. QUETIAPINE [Suspect]
     Indication: SCHIZOAFFECTIVE DISORDER
  8. OLANZAPINE [Suspect]
     Indication: SCHIZOAFFECTIVE DISORDER
     Dosage: 10 MG

REACTIONS (3)
  - DRUG LEVEL BELOW THERAPEUTIC [None]
  - LEUKOCYTOSIS [None]
  - DRUG INEFFECTIVE [None]
